FAERS Safety Report 4268579-0 (Version None)
Quarter: 2004Q1

REPORT INFORMATION
  Report Type: 
  Country: None (occurrence: None)
  Receive Date: 20040108
  Receipt Date: 20031226
  Transmission Date: 20041129
  Serious: Yes (Hospitalization)
  Sender: FDA-Public Use
  Company Number: 2003AP02233

PATIENT
  Age: 64 Year
  Sex: Male
  Weight: 72 kg

DRUGS (6)
  1. OMEPRAZOLE [Suspect]
     Indication: GASTRIC ULCER
     Dosage: 20 MG DAILY PO
     Route: 048
     Dates: start: 20030225, end: 20030604
  2. URSO [Concomitant]
  3. AMLODIN [Concomitant]
  4. GLYCYRON [Concomitant]
  5. ALLOID [Concomitant]
  6. THROMBIN [Concomitant]

REACTIONS (1)
  - INTERSTITIAL LUNG DISEASE [None]
